FAERS Safety Report 21470541 (Version 1)
Quarter: 2022Q4

REPORT INFORMATION
  Report Type: Report from Study
  Country: DE (occurrence: DE)
  Receive Date: 20221018
  Receipt Date: 20221018
  Transmission Date: 20230113
  Serious: Yes (Hospitalization)
  Sender: FDA-Public Use
  Company Number: DE-BIOCODEX-2009-031

PATIENT
  Age: 2 Year
  Sex: Female
  Weight: 13 kg

DRUGS (4)
  1. DIACOMIT [Suspect]
     Active Substance: STIRIPENTOL
     Indication: Generalised tonic-clonic seizure
     Route: 048
     Dates: start: 20081111, end: 20090126
  2. VALPROATE [Suspect]
     Active Substance: VALPROIC ACID
     Indication: Generalised tonic-clonic seizure
     Dosage: 300 MG/D ON 11-NOV-2008 REDUCED TO 150 MG/D AND DISCONTINUED BEFORE 26-JAN-2009.
     Route: 065
     Dates: start: 20181111
  3. VALPROATE [Suspect]
     Active Substance: VALPROIC ACID
     Indication: Generalised tonic-clonic seizure
     Dosage: 300 MG/D ON 11-NOV-2008 REDUCED TO 150 MG/D AND DISCONTINUED BEFORE 26-JAN-2009.
     Route: 065
  4. PHENOBARBITAL [Suspect]
     Active Substance: PHENOBARBITAL
     Indication: Generalised tonic-clonic seizure
     Route: 048
     Dates: start: 20090115

REACTIONS (6)
  - Decreased appetite [Recovered/Resolved]
  - Diarrhoea [Recovered/Resolved]
  - Sedation [Recovered/Resolved]
  - Neutropenia [Unknown]
  - Product use in unapproved indication [Unknown]
  - Drug ineffective [Unknown]

NARRATIVE: CASE EVENT DATE: 20081020
